FAERS Safety Report 18619420 (Version 1)
Quarter: 2020Q4

REPORT INFORMATION
  Report Type: Spontaneous
  Country: US (occurrence: US)
  Receive Date: 20201215
  Receipt Date: 20201215
  Transmission Date: 20210114
  Serious: No
  Sender: FDA-Public Use
  Company Number: US-PERRIGO-20US017112

PATIENT
  Sex: Female

DRUGS (3)
  1. IBUPROFEN. [Concomitant]
     Active Substance: IBUPROFEN
     Indication: EAR CONGESTION
     Dosage: UNKNOWN, UNKNOWN
     Route: 065
     Dates: start: 202011
  2. GUAIFENESIN-DEXTROMETHORPHAN HYDROBROMIDE [Suspect]
     Active Substance: DEXTROMETHORPHAN HYDROBROMIDE\GUAIFENESIN
     Indication: EAR CONGESTION
     Dosage: UNKNOWN, UNKNOWN
     Route: 048
     Dates: start: 202011
  3. VICK VAPORUB                       /01408101/ [Concomitant]
     Indication: EAR CONGESTION
     Dosage: UNKNOWN, UNKNOWN
     Route: 061
     Dates: start: 202011

REACTIONS (1)
  - Drug effective for unapproved indication [Unknown]
